FAERS Safety Report 8515754 (Version 4)
Quarter: 2015Q1

REPORT INFORMATION
  Report Type: Spontaneous
  Country: US (occurrence: US)
  Receive Date: 20120417
  Receipt Date: 20150318
  Transmission Date: 20150721
  Serious: Yes (Death, Hospitalization, Other)
  Sender: FDA-Public Use
  Company Number: US-PFIZER INC-2012092073

PATIENT
  Sex: Female
  Weight: 97.52 kg

DRUGS (16)
  1. SPIRONOLACTONE TABLETS, USP 50 MG [Suspect]
     Active Substance: SPIRONOLACTONE
     Indication: FURUNCLE
     Dosage: 25 MG, BID
     Route: 065
  2. LASIX [Concomitant]
     Active Substance: FUROSEMIDE
     Indication: HYPERTENSION
     Dosage: 40 MG, OD
     Route: 065
     Dates: start: 2003
  3. LEVOTHYROXINE [Concomitant]
     Active Substance: LEVOTHYROXINE
     Indication: HYPOTHYROIDISM
     Dosage: 100 MCG, UNK
     Route: 065
  4. LISINOPRIL. [Concomitant]
     Active Substance: LISINOPRIL
     Indication: HYPERTENSION
     Dosage: 10 MG, OD
     Route: 065
     Dates: start: 2003
  5. VENTOLIN HFA [Concomitant]
     Active Substance: ALBUTEROL SULFATE
     Indication: ASTHMA
  6. PRAVASTATIN [Concomitant]
     Active Substance: PRAVASTATIN\PRAVASTATIN SODIUM
     Indication: BLOOD CHOLESTEROL INCREASED
     Dosage: 20 MG, OD
     Route: 065
     Dates: start: 2003
  7. ALDACTONE [Suspect]
     Active Substance: SPIRONOLACTONE
     Indication: FURUNCLE
  8. ADVAIR HFA [Concomitant]
     Active Substance: FLUTICASONE PROPIONATE\SALMETEROL XINAFOATE
     Indication: CHRONIC OBSTRUCTIVE PULMONARY DISEASE
     Dosage: UNK
     Route: 065
     Dates: start: 2003
  9. SPIRONOLACTONE TABLETS, USP 50 MG [Suspect]
     Active Substance: SPIRONOLACTONE
     Indication: POLYCYSTIC OVARIES
     Dosage: 50 MG, BID
     Route: 065
     Dates: start: 201105
  10. SPIRONOLACTONE TABLETS, USP 50 MG [Suspect]
     Active Substance: SPIRONOLACTONE
     Indication: BLOOD TESTOSTERONE INCREASED
  11. ALDACTONE [Suspect]
     Active Substance: SPIRONOLACTONE
     Indication: VIRILISM
  12. SPIRONOLACTONE TABLETS, USP 50 MG [Suspect]
     Active Substance: SPIRONOLACTONE
     Indication: VIRILISM
     Dosage: 50 MG, BID
     Route: 065
     Dates: start: 1990
  13. ALDACTONE [Suspect]
     Active Substance: SPIRONOLACTONE
     Indication: POLYCYSTIC OVARIES
     Dosage: 25 MG, OD
     Route: 048
     Dates: start: 1988
  14. ALDACTONE [Suspect]
     Active Substance: SPIRONOLACTONE
     Indication: BLOOD TESTOSTERONE INCREASED
  15. ADVAIR HFA [Concomitant]
     Active Substance: FLUTICASONE PROPIONATE\SALMETEROL XINAFOATE
     Indication: ASTHMA
  16. VENTOLIN HFA [Concomitant]
     Active Substance: ALBUTEROL SULFATE
     Indication: CHRONIC OBSTRUCTIVE PULMONARY DISEASE
     Dosage: UNK
     Route: 065
     Dates: start: 2003

REACTIONS (16)
  - Pneumonia [Recovered/Resolved]
  - Fall [Unknown]
  - Scar [Recovered/Resolved]
  - Carpal tunnel syndrome [Recovered/Resolved]
  - Blood cholesterol increased [Recovered/Resolved]
  - Dyspnoea [Recovered/Resolved]
  - Infection [Recovered/Resolved]
  - Osteopenia [Recovered/Resolved]
  - Hypertension [Recovered/Resolved]
  - Chronic obstructive pulmonary disease [Recovered/Resolved]
  - Wrist fracture [Recovered/Resolved]
  - Malaise [Recovered/Resolved]
  - Osteoporosis [Recovered/Resolved]
  - Product use issue [Unknown]
  - Type 2 diabetes mellitus [Unknown]
  - Furuncle [Recovered/Resolved]

NARRATIVE: CASE EVENT DATE: 1990
